FAERS Safety Report 4473593-6 (Version None)
Quarter: 2004Q4

REPORT INFORMATION
  Report Type: 
  Country: None (occurrence: None)
  Receive Date: 20041013
  Receipt Date: 20041008
  Transmission Date: 20050328
  Serious: Yes (Hospitalization)
  Sender: FDA-Public Use
  Company Number: US-MERCK-0410USA01367

PATIENT
  Sex: Male

DRUGS (3)
  1. [THERAPY UNSPECIFIED] [Concomitant]
     Route: 065
  2. TOPROL-XL [Concomitant]
     Route: 065
  3. VIOXX [Suspect]
     Indication: TESTICULAR PAIN
     Route: 048
     Dates: end: 20040101

REACTIONS (3)
  - CHEST PAIN [None]
  - GASTRIC DISORDER [None]
  - TREMOR [None]
